FAERS Safety Report 5350765-X (Version None)
Quarter: 2007Q2

REPORT INFORMATION
  Report Type: 
  Country: None (occurrence: None)
  Receive Date: 20070606
  Receipt Date: 20070606
  Transmission Date: 20071010
  Serious: Yes (Hospitalization)
  Sender: FDA-Public Use
  Company Number: None

PATIENT
  Age: 67 Year
  Sex: Male

DRUGS (2)
  1. CLINDAMYCIN HCL [Suspect]
     Indication: PNEUMONIA
     Dosage: 900MG Q8H IV
     Route: 042
     Dates: start: 20070320, end: 20070329
  2. CEFTRIAXONE [Concomitant]

REACTIONS (3)
  - PALLOR [None]
  - RASH MACULAR [None]
  - RASH PRURITIC [None]
